FAERS Safety Report 5657627-9 (Version None)
Quarter: 2008Q1

REPORT INFORMATION
  Report Type: 
  Country: None (occurrence: None)
  Receive Date: 20080310
  Receipt Date: 20080226
  Transmission Date: 20080703
  Serious: Yes (Hospitalization)
  Sender: FDA-Public Use
  Company Number: CZ-ELI_LILLY_AND_COMPANY-CZ200801006061

PATIENT
  Sex: Male
  Weight: 99 kg

DRUGS (3)
  1. LISPRO 25LIS75NPL [Suspect]
     Dosage: 10 IU, 2/D
     Route: 058
     Dates: start: 20070319
  2. METFORMIN HCL [Concomitant]
     Route: 048
     Dates: start: 20020225
  3. GLIBENCLAMIDE [Concomitant]
     Route: 048
     Dates: start: 20050804

REACTIONS (1)
  - TRANSIENT ISCHAEMIC ATTACK [None]
